FAERS Safety Report 7252200-3 (Version None)
Quarter: 2011Q1

REPORT INFORMATION
  Report Type: 
  Country: None (occurrence: None)
  Receive Date: 20110129
  Receipt Date: 20100413
  Transmission Date: 20110831
  Serious: No
  Sender: FDA-Public Use
  Company Number: US-ABBOTT-10P-163-0639195-00

PATIENT
  Sex: Female
  Weight: 83.99 kg

DRUGS (4)
  1. LYRICA [Concomitant]
     Indication: FIBROMYALGIA
  2. NORTRIPTYLINE HYDROCHLORIDE [Concomitant]
     Indication: DEPRESSION
  3. PROZAC [Concomitant]
     Indication: DEPRESSION
  4. HUMIRA [Suspect]
     Indication: CROHN'S DISEASE
     Dates: start: 20080101

REACTIONS (1)
  - INJECTION SITE PAIN [None]
